FAERS Safety Report 5150553-3 (Version None)
Quarter: 2006Q4

REPORT INFORMATION
  Report Type: 
  Country: None (occurrence: None)
  Receive Date: 20061110
  Receipt Date: 20061110
  Transmission Date: 20070319
  Serious: Yes (Other)
  Sender: FDA-Public Use
  Company Number: None

PATIENT
  Sex: Male

DRUGS (6)
  1. COMBIVENT [Suspect]
     Indication: CHRONIC OBSTRUCTIVE PULMONARY DISEASE
     Dosage: INHALE 2 PUFFS FOUR TIMES A DAY
     Route: 055
     Dates: start: 20050101
  2. DUONEB INH SOLN [Concomitant]
  3. METFORMIN HCL APO [Concomitant]
  4. DOXAZOSIN MESYL  APO [Concomitant]
  5. L-THYROXINE (SYNTHROID) [Concomitant]
  6. DESONIDE CREAM [Concomitant]

REACTIONS (2)
  - FEELING ABNORMAL [None]
  - RESPIRATORY RATE INCREASED [None]
